FAERS Safety Report 9340715 (Version 1)
Quarter: 2013Q2

REPORT INFORMATION
  Report Type: Spontaneous
  Country: PL (occurrence: PL)
  Receive Date: 20130610
  Receipt Date: 20130610
  Transmission Date: 20140414
  Serious: Yes (Other)
  Sender: FDA-Public Use
  Company Number: PL-GLAXOSMITHKLINE-B0897738A

PATIENT
  Age: 57 Year
  Sex: Female

DRUGS (4)
  1. MELPHALAN [Suspect]
     Indication: PLASMA CELL MYELOMA
     Route: 065
  2. BORTEZOMIB [Suspect]
     Indication: PLASMA CELL LEUKAEMIA
     Route: 065
  3. DOXORUBICIN [Suspect]
     Indication: PLASMA CELL LEUKAEMIA
     Route: 065
  4. DEXAMETHASONE [Suspect]
     Indication: PLASMA CELL LEUKAEMIA
     Route: 065

REACTIONS (3)
  - Haematotoxicity [Unknown]
  - Infection [Unknown]
  - Peripheral sensory neuropathy [Unknown]
